FAERS Safety Report 4876844-9 (Version None)
Quarter: 2006Q1

REPORT INFORMATION
  Report Type: 
  Country: None (occurrence: None)
  Receive Date: 20060110
  Receipt Date: 20051230
  Transmission Date: 20060701
  Serious: Yes (Other)
  Sender: FDA-Public Use
  Company Number: 2006AC00021

PATIENT
  Age: 281 Month
  Sex: Female
  Weight: 59.6 kg

DRUGS (2)
  1. CRESTOR [Suspect]
     Indication: HYPERCHOLESTEROLAEMIA
     Route: 048
     Dates: start: 20050501, end: 20050801
  2. CYPROTERONE ACETATE + ETHINYLESTRADIOL [Concomitant]
     Indication: ALOPECIA
     Route: 048

REACTIONS (1)
  - VAGINAL HAEMORRHAGE [None]
